FAERS Safety Report 8607940-8 (Version None)
Quarter: 2012Q3

REPORT INFORMATION
  Report Type: 
  Country: None (occurrence: None)
  Receive Date: 20120821
  Receipt Date: 20120817
  Transmission Date: 20120928
  Serious: Yes (Hospitalization, Other)
  Sender: FDA-Public Use
  Company Number: DK-BRISTOL-MYERS SQUIBB COMPANY-16710220

PATIENT
  Age: 57 Year
  Sex: Female

DRUGS (13)
  1. ACETAMINOPHEN [Concomitant]
     Route: 048
     Dates: start: 20120529
  2. MORPHINE [Concomitant]
     Route: 048
     Dates: start: 20120626
  3. PREDNISOLONE [Concomitant]
     Route: 048
     Dates: start: 20120815
  4. INFLIXIMAB [Concomitant]
     Route: 042
     Dates: start: 20120720, end: 20120720
  5. METRONIDAZOLE [Concomitant]
     Route: 042
     Dates: start: 20120815
  6. PANTOPRAZOLE [Concomitant]
     Route: 048
     Dates: start: 20120626
  7. SOLU-MEDROL [Concomitant]
     Dosage: 13AUG12-14AUG12 IV 23JUN12-23JUN12 ORAL 19JUL12-19JUL12:125MG
     Route: 048
     Dates: start: 20120623, end: 20120814
  8. IBUPROFEN [Concomitant]
     Route: 048
     Dates: start: 20120815, end: 20120815
  9. VEPICOMBIN [Concomitant]
     Route: 048
     Dates: start: 20120807, end: 20120815
  10. IPILIMUMAB [Suspect]
     Indication: MALIGNANT MELANOMA
     Route: 042
     Dates: start: 20120601
  11. CLEMASTINE FUMARATE [Concomitant]
     Route: 048
     Dates: start: 20120608, end: 20120623
  12. ZINACEF [Concomitant]
     Route: 042
     Dates: start: 20120415, end: 20120815
  13. PREDNISOLONE [Concomitant]
     Dosage: 24JUN12-25JUN12:50MG 26JUN12-08JUL12:25MG 09JUL12-15JUL12:50MG 16JUL12-18AUG12:100MG
     Route: 048
     Dates: start: 20120624, end: 20120818

REACTIONS (3)
  - HEADACHE [None]
  - DIARRHOEA [None]
  - INFECTION [None]
